FAERS Safety Report 6978722-8 (Version None)
Quarter: 2010Q3

REPORT INFORMATION
  Report Type: 
  Country: None (occurrence: None)
  Receive Date: 20100913
  Receipt Date: 20100902
  Transmission Date: 20110219
  Serious: Yes (Other)
  Sender: FDA-Public Use
  Company Number: B0673795A

PATIENT
  Sex: Female

DRUGS (1)
  1. LAMICTAL [Suspect]
     Indication: EPILEPSY
     Route: 048
     Dates: start: 20100710, end: 20100811

REACTIONS (4)
  - DRY SKIN [None]
  - PSORIASIS [None]
  - SKIN DISORDER [None]
  - SKIN REACTION [None]
